FAERS Safety Report 4369379-3 (Version None)
Quarter: 2004Q2

REPORT INFORMATION
  Report Type: 
  Country: None (occurrence: None)
  Receive Date: 20040527
  Receipt Date: 20040514
  Transmission Date: 20050107
  Serious: Yes (Hospitalization)
  Sender: FDA-Public Use
  Company Number: US-JNJFOC-20040204647

PATIENT
  Age: 42 Year
  Sex: Male

DRUGS (10)
  1. DURAGESIC [Suspect]
     Indication: PAIN
     Dosage: 75 UG/HR, 1 IN 72 HOUR, TRANSDERMAL
     Route: 062
     Dates: start: 20030701, end: 20040201
  2. WELLBUTRIN [Concomitant]
  3. CLONAZEPAM [Concomitant]
  4. MIRALEX (MACROGOL) [Concomitant]
  5. DURLOX (BISACODYL) [Concomitant]
  6. FLEET LAXATIVE (ISACODYL) [Concomitant]
  7. FLEET (FLEET ENEMA) [Concomitant]
  8. GOLYTELY (GOLYTELY) [Concomitant]
  9. INDOMETHACIN [Concomitant]
  10. FAMOTIDINE [Concomitant]

REACTIONS (7)
  - ABDOMINAL PAIN [None]
  - CONSTIPATION [None]
  - INADEQUATE ANALGESIA [None]
  - MEDICATION ERROR [None]
  - MEGACOLON ACQUIRED [None]
  - PERICARDITIS [None]
  - PHARMACEUTICAL PRODUCT COMPLAINT [None]
